FAERS Safety Report 4883355-3 (Version None)
Quarter: 2006Q1

REPORT INFORMATION
  Report Type: 
  Country: None (occurrence: None)
  Receive Date: 20060118
  Receipt Date: 20060109
  Transmission Date: 20060701
  Serious: Yes (Other)
  Sender: FDA-Public Use
  Company Number: 2006PK00123

PATIENT
  Age: 27716 Day
  Sex: Female
  Weight: 67 kg

DRUGS (18)
  1. DISOPRIVAN [Suspect]
     Indication: ANAESTHESIA
     Route: 042
     Dates: start: 20051125, end: 20051125
  2. DISOPRIVAN [Suspect]
     Indication: VARICOSE VEIN OPERATION
     Route: 042
     Dates: start: 20051125, end: 20051125
  3. NITROUS OXIDE WITH OXYGEN [Suspect]
     Indication: ANAESTHESIA
     Dates: start: 20051125, end: 20051125
  4. NITROUS OXIDE WITH OXYGEN [Suspect]
     Indication: VARICOSE VEIN OPERATION
     Dates: start: 20051125, end: 20051125
  5. SEVOFLURANE [Suspect]
     Indication: ANAESTHESIA
     Dosage: UP TO 1.4 VOL%
     Dates: start: 20051125, end: 20051125
  6. SEVOFLURANE [Suspect]
     Indication: VARICOSE VEIN OPERATION
     Dosage: UP TO 1.4 VOL%
     Dates: start: 20051125, end: 20051125
  7. ATROPINE [Suspect]
     Indication: ANAESTHESIA
     Dates: start: 20051125, end: 20051125
  8. ATROPINE [Suspect]
     Indication: VARICOSE VEIN OPERATION
     Dates: start: 20051125, end: 20051125
  9. ALFENTANIL [Suspect]
     Indication: ANAESTHESIA
     Dates: start: 20051125, end: 20051125
  10. ALFENTANIL [Suspect]
     Indication: VARICOSE VEIN OPERATION
     Dates: start: 20051125, end: 20051125
  11. ESMERON [Suspect]
     Indication: ANAESTHESIA
     Dates: start: 20051125, end: 20051125
  12. ESMERON [Suspect]
     Indication: VARICOSE VEIN OPERATION
     Dates: start: 20051125, end: 20051125
  13. DIPIDOLOR [Concomitant]
     Dosage: INTRAOPERATIVELY
  14. DIPIDOLOR [Concomitant]
     Dosage: POSTOPERATIVELY
  15. FORTECORTIN [Concomitant]
     Indication: PROPHYLAXIS OF NAUSEA AND VOMITING
  16. ADALAT [Concomitant]
     Route: 060
  17. EUTHYROX [Concomitant]
  18. GALLOBETA [Concomitant]

REACTIONS (4)
  - ALANINE AMINOTRANSFERASE INCREASED [None]
  - ASPARTATE AMINOTRANSFERASE INCREASED [None]
  - GAMMA-GLUTAMYLTRANSFERASE INCREASED [None]
  - TRANSAMINASES INCREASED [None]
